FAERS Safety Report 23153896 (Version 8)
Quarter: 2024Q1

REPORT INFORMATION
  Report Type: Report from Study
  Country: AT (occurrence: AT)
  Receive Date: 20231107
  Receipt Date: 20240311
  Transmission Date: 20240409
  Serious: Yes (Hospitalization, Other)
  Sender: FDA-Public Use
  Company Number: AT-ABBVIE-5390845

PATIENT
  Age: 83 Year
  Sex: Male
  Weight: 84 kg

DRUGS (65)
  1. AZACITIDINE [Suspect]
     Active Substance: AZACITIDINE
     Indication: Acute myeloid leukaemia
     Dosage: 152 MILLIGRAM 152.88 MILLIGRAM (FREQUENCY TEXT: 0.001 ML/H)
     Route: 042
     Dates: start: 20230828, end: 20230903
  2. AZACITIDINE [Suspect]
     Active Substance: AZACITIDINE
     Dosage: 71 MILLIGRAM (FREQUENCY TEXT: 0.001 ML/H, CONTINUOUS END DATE- 2023)
     Route: 042
     Dates: start: 20231010, end: 20231117
  3. AZACITIDINE [Suspect]
     Active Substance: AZACITIDINE
     Dosage: 70 MILLIGRAM, DOSE 70.01 MG
     Route: 042
     Dates: start: 20231123, end: 20231129
  4. AZACITIDINE [Suspect]
     Active Substance: AZACITIDINE
     Dosage: 71 MILLIGRAM (FREQUENCY TEXT: 0.001 ML/H, CONTINUOUS)
     Route: 042
     Dates: start: 20231010, end: 20231017
  5. AZACITIDINE [Suspect]
     Active Substance: AZACITIDINE
     Dosage: UNK
     Route: 042
     Dates: start: 20230904, end: 20231009
  6. AZACITIDINE [Suspect]
     Active Substance: AZACITIDINE
     Dosage: UNK
     Route: 042
     Dates: start: 20231018, end: 20231122
  7. VENETOCLAX [Suspect]
     Active Substance: VENETOCLAX
     Indication: Acute myeloid leukaemia
     Dosage: 100 MILLIGRAM, QD, 0-0-1-0
     Route: 048
     Dates: start: 20230828, end: 20230828
  8. VENETOCLAX [Suspect]
     Active Substance: VENETOCLAX
     Dosage: 200 MILLIGRAM, UP TITRATION
     Route: 048
     Dates: start: 20230829, end: 20230829
  9. VENETOCLAX [Suspect]
     Active Substance: VENETOCLAX
     Dosage: 100 MILLIGRAM, UP TITRATION
     Route: 048
     Dates: start: 20230904, end: 20230906
  10. VENETOCLAX [Suspect]
     Active Substance: VENETOCLAX
     Dosage: 200 MILLIGRAM, STANDARD DOSING
     Route: 048
     Dates: start: 20230907, end: 20230916
  11. VENETOCLAX [Suspect]
     Active Substance: VENETOCLAX
     Dosage: 100 MILLIGRAM
     Route: 048
     Dates: start: 20231010, end: 20231010
  12. VENETOCLAX [Suspect]
     Active Substance: VENETOCLAX
     Dosage: 200 MILLIGRAM  0.001 ML/H, CONTINUOUS
     Route: 048
     Dates: start: 20231023, end: 20231023
  13. VENETOCLAX [Suspect]
     Active Substance: VENETOCLAX
     Dosage: 200 MILLIGRAM STANDARD DOSE
     Route: 048
     Dates: start: 20231123, end: 20231129
  14. VENETOCLAX [Suspect]
     Active Substance: VENETOCLAX
     Dosage: 15 MILLIGRAM
     Route: 048
     Dates: start: 20231024, end: 20231122
  15. VENETOCLAX [Suspect]
     Active Substance: VENETOCLAX
     Dosage: UNK
     Route: 048
     Dates: start: 20230917, end: 20231009
  16. VENETOCLAX [Suspect]
     Active Substance: VENETOCLAX
     Dosage: UNK
     Route: 048
     Dates: start: 20231130, end: 20240117
  17. VENETOCLAX [Suspect]
     Active Substance: VENETOCLAX
     Dosage: UNK
     Route: 048
     Dates: start: 20231024, end: 20231122
  18. AMPHOTERICIN B [Concomitant]
     Active Substance: AMPHOTERICIN B
     Indication: Supportive care
     Dosage: UNK UNK, QD DAILY
     Route: 065
     Dates: start: 20230901, end: 20231007
  19. GLYCOSAMINOGLYCANS [Concomitant]
     Active Substance: GLYCOSAMINOGLYCANS
     Indication: Supportive care
     Dosage: UNK, QD
     Route: 065
     Dates: start: 20230908, end: 20231113
  20. GLYCOSAMINOGLYCANS [Concomitant]
     Active Substance: GLYCOSAMINOGLYCANS
     Dosage: UNK
     Route: 065
     Dates: start: 20230908
  21. AMLODIPINE BESYLATE [Concomitant]
     Active Substance: AMLODIPINE BESYLATE
     Indication: Product used for unknown indication
     Dosage: 5 MILLIGRAM, QD DAILY
     Route: 048
     Dates: start: 20230905
  22. PIPERACILLIN [Concomitant]
     Active Substance: PIPERACILLIN
     Indication: Product used for unknown indication
     Dosage: UNK, 4G/0.5GPIPERACILLIN/TAZOBACTAM KABI
     Route: 042
     Dates: start: 20230821
  23. PIPERACILLIN [Concomitant]
     Active Substance: PIPERACILLIN
     Dosage: 4000 MILLIGRAM, QD DAILY
     Route: 065
     Dates: start: 20231212, end: 20231215
  24. CHOLECALCIFEROL [Concomitant]
     Active Substance: CHOLECALCIFEROL
     Indication: Product used for unknown indication
     Dosage: FREQUENCY TEXT: 1-0-0-0, 1 DROP DAILYDOSE-12.5
     Route: 048
     Dates: start: 20230821
  25. CHOLECALCIFEROL [Concomitant]
     Active Substance: CHOLECALCIFEROL
     Dosage: UNK UNK, MONTHLY
     Route: 048
     Dates: start: 2023
  26. CHOLECALCIFEROL [Concomitant]
     Active Substance: CHOLECALCIFEROL
     Dosage: 12.5 MILLIGRAM 1-0-0-0, 1 DROP DAILYDOSE-12.5 MG LAST ADMIN DATE 2023
     Route: 048
     Dates: start: 20230821
  27. AMLODIPINE AND VALSARTAN [Concomitant]
     Active Substance: AMLODIPINE\VALSARTAN
     Indication: Product used for unknown indication
     Dosage: 5 MILLIGRAM, QD
     Route: 048
     Dates: start: 20230905
  28. HAEMOCOMPLETTAN P [Concomitant]
     Active Substance: FIBRINOGEN HUMAN
     Indication: Product used for unknown indication
     Dosage: 1000 INTERNATIONAL UNIT, PRN AS REQUIRED
     Route: 042
     Dates: start: 20230829
  29. RILMENIDINE [Concomitant]
     Active Substance: RILMENIDINE
     Indication: Product used for unknown indication
     Dosage: 1000 MILLIGRAM, QD
     Route: 048
     Dates: start: 20230831
  30. ASPIRIN [Concomitant]
     Active Substance: ASPIRIN
     Indication: Product used for unknown indication
     Dosage: 100 MILLIGRAM, QD, FREQUENCY TEXT: 0-1-0-0
     Route: 048
     Dates: start: 20230821
  31. EXFORGE [Concomitant]
     Active Substance: AMLODIPINE BESYLATE\VALSARTAN
     Indication: Product used for unknown indication
     Dosage: 5 MG/80 1-0-0-0, DAILY
     Route: 048
     Dates: start: 20230821
  32. EXFORGE [Concomitant]
     Active Substance: AMLODIPINE BESYLATE\VALSARTAN
     Dosage: 5 MG/80 MG
     Route: 048
     Dates: start: 20230821
  33. EXFORGE [Concomitant]
     Active Substance: AMLODIPINE BESYLATE\VALSARTAN
     Dosage: 5 MG/80 MG
     Route: 048
     Dates: start: 20230821
  34. SODIUM CHLORIDE [Concomitant]
     Active Substance: SODIUM CHLORIDE
     Indication: Pain
     Dosage: 100ML PRN,NACL 0.9% AS REQUIRED
     Route: 042
     Dates: start: 20230821
  35. SODIUM CHLORIDE [Concomitant]
     Active Substance: SODIUM CHLORIDE
     Indication: Body temperature
  36. SODIUM CHLORIDE [Concomitant]
     Active Substance: SODIUM CHLORIDE
     Indication: Body temperature abnormal
  37. SODIUM CHLORIDE [Concomitant]
     Active Substance: SODIUM CHLORIDE
     Indication: Body temperature increased
  38. LEVOFLOXACIN [Concomitant]
     Active Substance: LEVOFLOXACIN
     Indication: Product used for unknown indication
     Dosage: 250 MILLIGRAM, QD 50ML
     Route: 042
     Dates: start: 20230823, end: 20231127
  39. GLANDOMED [Concomitant]
     Indication: Supportive care
     Dosage: 10 MILLILITER, PRN AS REQUIRED
     Route: 065
     Dates: start: 20230901
  40. MEROPENEM [Concomitant]
     Active Substance: MEROPENEM
     Indication: Product used for unknown indication
     Dosage: 1000 MILLIGRAM, 0.33 DAY
     Route: 042
     Dates: start: 20230830
  41. MEROPENEM [Concomitant]
     Active Substance: MEROPENEM
     Dosage: 3000 MILLIGRAM, QD
     Route: 065
     Dates: start: 20231128, end: 20231211
  42. Novalgin [Concomitant]
     Indication: Product used for unknown indication
     Dosage: 500 MILLIGRAM, Q6H INTERVAL 6, AS REQUIRED, MAX 3X DAILY
     Route: 048
     Dates: start: 20230821
  43. ONDANSETRON [Concomitant]
     Active Substance: ONDANSETRON
     Indication: Nausea
     Dosage: AS REQUIRED, MAX 2X DAILY100ML
     Route: 048
     Dates: start: 20230821
  44. BERIPLEX HS [Concomitant]
     Active Substance: COAGULATION FACTOR IX HUMAN\COAGULATION FACTOR VII HUMAN\COAGULATION FACTOR X HUMAN\PROTEIN C\PROTEI
     Indication: Product used for unknown indication
     Dosage: 1000 INTERNATIONAL UNIT, PRN AS REQUIRED
     Route: 042
     Dates: start: 20230829
  45. FILGRASTIM [Concomitant]
     Active Substance: FILGRASTIM
     Indication: Supportive care
     Dosage: 30 INTERNATIONAL UNIT, QD DAILY
     Route: 065
     Dates: start: 20230921
  46. METAMIZOL [Concomitant]
     Active Substance: METAMIZOLE SODIUM
     Indication: Body temperature
     Dosage: 1000 MILLIGRAM, PRN AS REQUIRED, MAX. 3X DAILYMETAMIZOL + 100ML NACL 0.9% AS REQUIRED
     Route: 042
     Dates: start: 20230821
  47. METAMIZOL [Concomitant]
     Active Substance: METAMIZOLE SODIUM
     Indication: Pain
  48. METAMIZOL [Concomitant]
     Active Substance: METAMIZOLE SODIUM
     Indication: Body temperature increased
  49. PIPERACILLIN SODIUM\TAZOBACTAM SODIUM [Concomitant]
     Active Substance: PIPERACILLIN SODIUM\TAZOBACTAM SODIUM
     Indication: Product used for unknown indication
     Dosage: 4G/0.5GPIPERACILLIN/TAZOBACTAM KABI + 100ML NACL 0.9%
     Route: 042
     Dates: start: 20230821
  50. SODIUM BICARBONATE\SODIUM CHLORIDE [Concomitant]
     Active Substance: SODIUM BICARBONATE\SODIUM CHLORIDE
     Indication: Product used for unknown indication
     Dosage: 60 MILLILITER, QH CONTINUOUS NABI 8.4% 60ML + 1000ML NACL 0.9%
     Route: 065
     Dates: start: 20230821, end: 20230829
  51. SODIUM BICARBONATE\SODIUM CHLORIDE [Concomitant]
     Active Substance: SODIUM BICARBONATE\SODIUM CHLORIDE
     Dosage: 6 MILLILITER, QH VARIABLE RATE
     Route: 065
     Dates: start: 20230829, end: 20230829
  52. TAZOBACTAM [Concomitant]
     Active Substance: TAZOBACTAM
     Indication: Product used for unknown indication
     Dosage: 500 MILLIGRAM, QD DAILY
     Route: 065
     Dates: start: 20231212, end: 20231215
  53. VORICONAZOLE [Concomitant]
     Active Substance: VORICONAZOLE
     Indication: Product used for unknown indication
     Dosage: 400 MILLIGRAM, QD DAILY
     Route: 065
     Dates: start: 20231211, end: 20231214
  54. AMBISOME [Concomitant]
     Active Substance: AMPHOTERICIN B
     Indication: Product used for unknown indication
     Dosage: UNK, QD
     Route: 065
     Dates: start: 20231114, end: 20231221
  55. DESFERAL [Concomitant]
     Active Substance: DEFEROXAMINE MESYLATE
     Indication: Product used for unknown indication
     Dosage: 1000 MILLIGRAM AS REQUIRED
     Route: 065
     Dates: start: 20231216
  56. MEROPENEM [Concomitant]
     Active Substance: MEROPENEM
     Indication: Product used for unknown indication
     Dosage: FREQUENCY TEXT: DAILY
     Route: 065
  57. MYCOSTATIN [Concomitant]
     Active Substance: NYSTATIN
     Indication: Product used for unknown indication
     Dosage: 50 MILLILITER 0.33 PER DAY
     Route: 065
     Dates: start: 20231123
  58. VALCYTE [Concomitant]
     Active Substance: VALGANCICLOVIR HYDROCHLORIDE
     Indication: Product used for unknown indication
     Dosage: 450 MILLIGRAM, QD
     Route: 065
     Dates: start: 20231123
  59. PANTOPRAZOLE SODIUM [Concomitant]
     Active Substance: PANTOPRAZOLE SODIUM
     Indication: Product used for unknown indication
     Dosage: 40 MILLIGRAM, QD DAILY
     Route: 065
  60. TARGOCID [Concomitant]
     Active Substance: TEICOPLANIN
     Indication: Product used for unknown indication
     Dosage: 400 MILLIGRAM, QD DAILY
     Route: 065
     Dates: start: 20231215
  61. CEFEPIME HYDROCHLORIDE [Concomitant]
     Active Substance: CEFEPIME HYDROCHLORIDE
     Indication: Product used for unknown indication
     Dosage: UNK
     Route: 065
     Dates: start: 20231215
  62. AVELOX [Concomitant]
     Active Substance: MOXIFLOXACIN HYDROCHLORIDE
     Indication: Product used for unknown indication
     Dosage: UNK
     Route: 065
     Dates: start: 20231215
  63. Paspertin [Concomitant]
     Indication: Nausea
     Dosage: FREQUENCY TEXT: AS REQUIRED, MAX, 3X DAILY
     Route: 048
     Dates: start: 20230821
  64. Paspertin [Concomitant]
     Indication: Nausea
     Dosage: PASPERTIN + 100 ML NACL 0.9%, MIN. INTERVAL BETWEEN 2 ADMINS: 6 H, AS REQUIRED, MAX, 3X DAILY
     Route: 042
     Dates: start: 20230821
  65. NERIUM OLEANDER LEAF [Concomitant]
     Active Substance: NERIUM OLEANDER LEAF
     Indication: Product used for unknown indication
     Dosage: 1 MILLIGRAM, QD (DAILY)
     Route: 065
     Dates: start: 20231123

REACTIONS (9)
  - Anaemia [Recovered/Resolved]
  - Tumour lysis syndrome [Recovered/Resolved]
  - Pyrexia [Recovered/Resolved]
  - Febrile neutropenia [Recovered/Resolved]
  - Thrombocytopenia [Not Recovered/Not Resolved]
  - Hepatic infection fungal [Recovered/Resolved]
  - Blood iron abnormal [Unknown]
  - C-reactive protein increased [Unknown]
  - Off label use [Unknown]

NARRATIVE: CASE EVENT DATE: 20230101
